FAERS Safety Report 4665668-3 (Version None)
Quarter: 2005Q2

REPORT INFORMATION
  Report Type: 
  Country: None (occurrence: None)
  Receive Date: 20050517
  Receipt Date: 20050517
  Transmission Date: 20051028
  Serious: No
  Sender: FDA-Public Use
  Company Number: None

PATIENT
  Age: 57 Year
  Sex: Male

DRUGS (1)
  1. TAXOL [Suspect]
     Dates: start: 20050422

REACTIONS (2)
  - DEVICE FAILURE [None]
  - MIGRATION OF IMPLANT [None]
